FAERS Safety Report 12745923 (Version 1)
Quarter: 2016Q3

REPORT INFORMATION
  Report Type: Report from Study
  Country: JP (occurrence: JP)
  Receive Date: 20160915
  Receipt Date: 20160915
  Transmission Date: 20161109
  Serious: Yes (Death, Other)
  Sender: FDA-Public Use
  Company Number: JP-ACTELION-A-CH2015-111512

PATIENT
  Age: 74 Year
  Sex: Male

DRUGS (18)
  1. MIRTAZAPINE. [Concomitant]
     Active Substance: MIRTAZAPINE
  2. OXYGEN. [Concomitant]
     Active Substance: OXYGEN
  3. TADALAFIL [Concomitant]
     Active Substance: TADALAFIL
  4. EPOPROSTENOL ACT [Suspect]
     Active Substance: EPOPROSTENOL
     Indication: PULMONARY HYPERTENSION
     Dosage: 1 NG/KG, PER MIN
     Route: 042
     Dates: start: 20140729
  5. FUROSEMIDE. [Concomitant]
     Active Substance: FUROSEMIDE
  6. SODIUM RABEPRAZOLE [Concomitant]
     Active Substance: RABEPRAZOLE SODIUM
  7. BOSENTAN. [Concomitant]
     Active Substance: BOSENTAN
  8. WARFARIN [Concomitant]
     Active Substance: WARFARIN
  9. MONTELUKAST [Concomitant]
     Active Substance: MONTELUKAST SODIUM
  10. LEVOCETIRIZINE [Concomitant]
     Active Substance: LEVOCETIRIZINE
  11. PRAMIPEXOLE. [Concomitant]
     Active Substance: PRAMIPEXOLE
  12. FERROUS CITRATE [Concomitant]
     Active Substance: FERROUS CITRATE
  13. ZOLPIDEM TARTATE [Concomitant]
     Active Substance: ZOLPIDEM TARTRATE
  14. INDACATEROL [Concomitant]
     Active Substance: INDACATEROL
  15. EPOPROSTENOL ACT [Suspect]
     Active Substance: EPOPROSTENOL
     Dosage: 5 NG/KG, PER MIN
     Route: 042
     Dates: end: 20140801
  16. EPOPROSTENOL ACT [Suspect]
     Active Substance: EPOPROSTENOL
     Dosage: 2 NG/KG, PER MIN
     Route: 042
     Dates: start: 20140802, end: 20140803
  17. PREDNISOLONE. [Concomitant]
     Active Substance: PREDNISOLONE
  18. GLYCOPYRONIUM [Concomitant]
     Active Substance: GLYCOPYRRONIUM

REACTIONS (4)
  - Headache [Recovered/Resolved]
  - Right ventricular failure [Fatal]
  - Hypoxia [Not Recovered/Not Resolved]
  - Dyspnoea [Fatal]

NARRATIVE: CASE EVENT DATE: 20140731
